FAERS Safety Report 5532167-6 (Version None)
Quarter: 2007Q4

REPORT INFORMATION
  Report Type: 
  Country: None (occurrence: None)
  Receive Date: 20071128
  Receipt Date: 20071112
  Transmission Date: 20080405
  Serious: Yes (Hospitalization)
  Sender: FDA-Public Use
  Company Number: S07-GER-06056-01

PATIENT
  Age: 69 Year
  Sex: Female

DRUGS (13)
  1. CIPRAMIL (CITALOPRAM HYDROBROMIDB) [Suspect]
     Indication: DEPRESSION
     Dosage: 20 MG QD PO
     Route: 048
     Dates: end: 20070101
  2. CIPRAMIL (CITALOPRAM HYDROBROMIDB) [Suspect]
     Indication: MAJOR DEPRESSION
     Dosage: 20 MG QD PO
     Route: 048
     Dates: end: 20070101
  3. SEROQUEL [Suspect]
     Indication: PSYCHOTIC DISORDER
     Dosage: 100 MG QD PO
     Route: 048
     Dates: start: 20070730, end: 20070805
  4. SEROQUEL [Suspect]
     Indication: PSYCHOTIC DISORDER
     Dosage: 200 MG QD PO
     Route: 048
     Dates: start: 20070727, end: 20070729
  5. SEROQUEL [Suspect]
     Indication: PSYCHOTIC DISORDER
     Dosage: 25 MG QD PO
     Route: 048
     Dates: start: 20070710, end: 20070710
  6. SEROQUEL [Suspect]
     Indication: PSYCHOTIC DISORDER
     Dosage: 50 MG QD PO
     Route: 048
     Dates: start: 20070711, end: 20070718
  7. SEROQUEL [Suspect]
     Indication: PSYCHOTIC DISORDER
     Dosage: 100 MG QD PO
     Route: 048
     Dates: start: 20070719, end: 20070726
  8. MADOPAR [Concomitant]
  9. L-THYROXIN (LEVOTHYROXINE) [Concomitant]
  10. LORAZEPAM [Concomitant]
  11. DOCITON (PROPRANOLOL HYDROCHLORIDE) [Concomitant]
  12. NEUPRO (ROTIGOTINE) [Concomitant]
  13. MACROGOL [Concomitant]

REACTIONS (7)
  - CEREBELLAR ATROPHY [None]
  - CEREBRAL ATROPHY [None]
  - DEPRESSION [None]
  - FEAR [None]
  - MICROANGIOPATHY [None]
  - PARKINSONISM [None]
  - PSYCHOTIC DISORDER [None]
